FAERS Safety Report 8556771-6 (Version None)
Quarter: 2012Q3

REPORT INFORMATION
  Report Type: 
  Country: None (occurrence: None)
  Receive Date: 20120726
  Receipt Date: 20120726
  Transmission Date: 20120928
  Serious: Yes (Other)
  Sender: FDA-Public Use
  Company Number: None

PATIENT
  Sex: Female

DRUGS (3)
  1. MISOPROSTOL [Suspect]
     Indication: CERVIX DISORDER
     Dosage: 200 MG, ONCE, PO
     Route: 048
     Dates: start: 20120717
  2. LIPITOR [Concomitant]
  3. VITAMIN D [Concomitant]

REACTIONS (3)
  - TREMOR [None]
  - FEELING COLD [None]
  - APHASIA [None]
